FAERS Safety Report 25307050 (Version 3)
Quarter: 2025Q3

REPORT INFORMATION
  Report Type: Report from Study
  Country: US (occurrence: US)
  Receive Date: 20250513
  Receipt Date: 20250809
  Transmission Date: 20251020
  Serious: Yes (Other)
  Sender: ALEXION PHARMACEUTICALS
  Company Number: US-AstraZeneca-CH-00866033A

PATIENT
  Sex: Female

DRUGS (16)
  1. DAPAGLIFLOZIN [Suspect]
     Active Substance: DAPAGLIFLOZIN
  2. OMEPRAZOLE [Suspect]
     Active Substance: OMEPRAZOLE
     Route: 065
  3. ALBUTEROL [Concomitant]
     Active Substance: ALBUTEROL
     Route: 065
  4. ALENDRONATE [Concomitant]
     Active Substance: ALENDRONATE SODIUM
     Route: 065
  5. Acv [Concomitant]
  6. AZELASTINE [Concomitant]
     Active Substance: AZELASTINE
  7. TRULICITY [Concomitant]
     Active Substance: DULAGLUTIDE
  8. FIBER THERAPY (CALCIUM POLYCARBOPHIL) [Concomitant]
     Active Substance: CALCIUM POLYCARBOPHIL
  9. FLUTICASONE [Concomitant]
     Active Substance: FLUTICASONE
  10. BASAGLAR [Concomitant]
     Active Substance: INSULIN GLARGINE
  11. IPRATROPIUM [Concomitant]
     Active Substance: IPRATROPIUM
  12. ALBUTEROL [Concomitant]
     Active Substance: ALBUTEROL
  13. METFORMIN [Concomitant]
     Active Substance: METFORMIN HYDROCHLORIDE
  14. Omega [Concomitant]
  15. PIOGLITAZONE [Concomitant]
     Active Substance: PIOGLITAZONE
  16. PRAVASTATIN [Concomitant]
     Active Substance: PRAVASTATIN

REACTIONS (7)
  - Major depression [Unknown]
  - Type 2 diabetes mellitus [Unknown]
  - Diabetic retinopathy [Unknown]
  - Hypotension [Unknown]
  - Anxiety [Unknown]
  - Hypertension [Unknown]
  - Hyperlipidaemia [Unknown]
